FAERS Safety Report 11934688 (Version 2)
Quarter: 2016Q1

REPORT INFORMATION
  Report Type: Spontaneous
  Country: IT (occurrence: IT)
  Receive Date: 20160121
  Receipt Date: 20160125
  Transmission Date: 20160526
  Serious: Yes (Other)
  Sender: FDA-Public Use
  Company Number: IT-JNJFOC-20160111032

PATIENT
  Age: 28 Year
  Sex: Female
  Weight: 67 kg

DRUGS (1)
  1. ORTHO EVRA [Suspect]
     Active Substance: ETHINYL ESTRADIOL\NORELGESTROMIN
     Indication: CONTRACEPTION
     Route: 062

REACTIONS (4)
  - Heat stroke [Unknown]
  - Venous thrombosis limb [Recovered/Resolved]
  - Deep vein thrombosis [Recovered/Resolved]
  - Migraine [Recovered/Resolved]

NARRATIVE: CASE EVENT DATE: 20040101
